FAERS Safety Report 7763890-0 (Version None)
Quarter: 2011Q3

REPORT INFORMATION
  Report Type: 
  Country: None (occurrence: None)
  Receive Date: 20110921
  Receipt Date: 20110912
  Transmission Date: 20111222
  Serious: Yes (Other)
  Sender: FDA-Public Use
  Company Number: US-BAYER-2011-084748

PATIENT
  Sex: Female

DRUGS (8)
  1. GLUCOSAMINE [Concomitant]
  2. BEYAZ [Suspect]
     Dosage: UNK
     Dates: start: 20110815
  3. RANITIDINE [Concomitant]
  4. CITALOPRAM HYDROBROMIDE [Concomitant]
     Dosage: UNK
     Dates: end: 20110908
  5. MULTI-VITAMIN [Concomitant]
  6. CALCIUM CITRATE [Concomitant]
  7. DROSPIRENONE AND ETHINYL ESTRADIOL [Suspect]
     Dosage: UNK
     Dates: start: 20110501
  8. FERROUS SULFATE TAB [Concomitant]
     Dosage: UNK UNK, QD

REACTIONS (2)
  - MENORRHAGIA [None]
  - VAGINAL HAEMORRHAGE [None]
